FAERS Safety Report 19994410 (Version 1)
Quarter: 2021Q4

REPORT INFORMATION
  Report Type: Spontaneous
  Country: US (occurrence: US)
  Receive Date: 20211025
  Receipt Date: 20211025
  Transmission Date: 20220304
  Serious: Yes (Hospitalization)
  Sender: FDA-Public Use
  Company Number: None

PATIENT
  Age: 47 Year
  Sex: Female

DRUGS (1)
  1. GLEEVEC [Suspect]
     Active Substance: IMATINIB MESYLATE
     Indication: Gastric cancer
     Route: 048
     Dates: start: 202105

REACTIONS (3)
  - Loss of consciousness [None]
  - Blood potassium decreased [None]
  - Hypotension [None]

NARRATIVE: CASE EVENT DATE: 20211014
